FAERS Safety Report 10089651 (Version 1)
Quarter: 2014Q2

REPORT INFORMATION
  Report Type: Spontaneous
  Country: US (occurrence: US)
  Receive Date: 20140421
  Receipt Date: 20140421
  Transmission Date: 20141212
  Serious: No
  Sender: FDA-Public Use
  Company Number: US-PFIZER INC-2014105725

PATIENT
  Age: 55 Year
  Sex: Female

DRUGS (7)
  1. NORVASC [Suspect]
     Dosage: UNK
  2. LIPITOR [Suspect]
     Dosage: UNK
  3. CHOLECALCIFEROL [Suspect]
     Dosage: UNK
  4. HYDROCHLOROTHIAZIDE [Suspect]
     Dosage: UNK
  5. OMEGA 3 [Suspect]
     Dosage: UNK
  6. NOVOCAINE [Suspect]
     Dosage: UNK
  7. VALPROIC ACID [Suspect]
     Dosage: UNK

REACTIONS (1)
  - Drug hypersensitivity [Unknown]
